FAERS Safety Report 8416031 (Version 2)
Quarter: 2013Q1

REPORT INFORMATION
  Report Type: Spontaneous
  Country: US (occurrence: US)
  Receive Date: 20120218
  Receipt Date: 20130119
  Transmission Date: 20140127
  Serious: No
  Sender: FDA-Public Use
  Company Number: US-ALLERGAN-1114961US

PATIENT
  Age: 58 Year
  Sex: Female

DRUGS (3)
  1. BOTOX COSMETIC [Suspect]
     Indication: SKIN WRINKLING
     Dosage: UNK UNITS
     Route: 030
     Dates: start: 20111017, end: 20111017
  2. JUVADERM [Concomitant]
     Indication: SKIN WRINKLING
     Dosage: UNK
     Dates: start: 20111017
  3. JUVADERM [Concomitant]
     Dosage: UNKNOWN LOT DOSE OR SITE
     Dates: start: 20111017

REACTIONS (5)
  - Rash [Recovering/Resolving]
  - Haematoma [Recovering/Resolving]
  - Contusion [Recovering/Resolving]
  - Swelling face [Recovering/Resolving]
  - Headache [Recovering/Resolving]
